FAERS Safety Report 19890399 (Version 1)
Quarter: 2021Q3

REPORT INFORMATION
  Report Type: Spontaneous
  Country: ES (occurrence: ES)
  Receive Date: 20210928
  Receipt Date: 20210928
  Transmission Date: 20211014
  Serious: Yes (Other)
  Sender: FDA-Public Use
  Company Number: ES-PFIZER INC-2021757910

PATIENT
  Age: 70 Year
  Sex: Female

DRUGS (4)
  1. PREGABALIN. [Interacting]
     Active Substance: PREGABALIN
     Indication: ORTHOSTATIC TREMOR
  2. PERAMPANEL [Interacting]
     Active Substance: PERAMPANEL
     Dosage: 4 MG, 1X/DAY
     Route: 065
  3. PERAMPANEL [Interacting]
     Active Substance: PERAMPANEL
     Indication: ORTHOSTATIC TREMOR
     Dosage: 2 MG, 1X/DAY (QD)
     Route: 065
  4. PREGABALIN. [Suspect]
     Active Substance: PREGABALIN
     Indication: TREMOR
     Dosage: 2 MG
     Route: 065

REACTIONS (3)
  - Dizziness [Unknown]
  - Drug interaction [Unknown]
  - Off label use [Unknown]
